FAERS Safety Report 21248143 (Version 1)
Quarter: 2022Q3

REPORT INFORMATION
  Report Type: Spontaneous
  Country: FR (occurrence: FR)
  Receive Date: 20220824
  Receipt Date: 20220824
  Transmission Date: 20221026
  Serious: Yes (Other)
  Sender: FDA-Public Use
  Company Number: FR-SA-SAC20220720000720

PATIENT
  Age: 17 Year

DRUGS (1)
  1. TRAMADOL [Suspect]
     Active Substance: TRAMADOL
     Indication: Product used for unknown indication
     Dosage: 200 TO 250 MG,QD
     Route: 048

REACTIONS (3)
  - Epilepsy [Unknown]
  - Contraindicated product administered [Unknown]
  - Intentional product misuse [Unknown]
